FAERS Safety Report 9174710 (Version 1)
Quarter: 2013Q1

REPORT INFORMATION
  Report Type: Report from Study
  Country: US (occurrence: US)
  Receive Date: 20130320
  Receipt Date: 20130320
  Transmission Date: 20140127
  Serious: Yes (Hospitalization)
  Sender: FDA-Public Use
  Company Number: US-ABBOTT-13P-163-1061871-00

PATIENT
  Age: 55 Year
  Sex: Male
  Weight: 114.41 kg

DRUGS (18)
  1. HUMIRA [Suspect]
     Indication: PSORIATIC ARTHROPATHY
     Dates: start: 200503
  2. HUMIRA [Suspect]
     Indication: CROHN^S DISEASE
  3. HUMIRA [Suspect]
     Indication: PSORIASIS
  4. ERGOCALCIFEROL [Concomitant]
     Indication: PRODUCT USED FOR UNKNOWN INDICATION
  5. LISINOPRIL [Concomitant]
     Indication: HYPERTENSION
  6. MAGNESIUM [Concomitant]
     Indication: MINERAL SUPPLEMENTATION
  7. MOBIC [Concomitant]
     Indication: PRODUCT USED FOR UNKNOWN INDICATION
  8. MESALAMINE [Concomitant]
     Indication: PRODUCT USED FOR UNKNOWN INDICATION
  9. METOPROLOL TARTRATE [Concomitant]
     Indication: HYPERTENSION
  10. PROTONIX [Concomitant]
     Indication: CROHN^S DISEASE
  11. MULTIVITAMIN [Concomitant]
     Indication: VITAMIN SUPPLEMENTATION
  12. NIASPAN [Concomitant]
     Indication: BLOOD TRIGLYCERIDES INCREASED
  13. SEROQUEL [Concomitant]
     Indication: INSOMNIA
  14. RISPERIDONE [Concomitant]
     Indication: PSYCHOTIC DISORDER
  15. ASACOL [Concomitant]
     Indication: CROHN^S DISEASE
  16. RESTORIL [Concomitant]
     Indication: INSOMNIA
  17. TRILEPTAL [Concomitant]
     Indication: BIPOLAR DISORDER
  18. GLIPIZIDE [Concomitant]
     Indication: DIABETES MELLITUS

REACTIONS (5)
  - Angina pectoris [Recovered/Resolved]
  - Pneumonia [Recovered/Resolved]
  - Chest discomfort [Recovered/Resolved]
  - Chest pain [Recovered/Resolved]
  - Dyspnoea [Recovered/Resolved]
